FAERS Safety Report 20705472 (Version 1)
Quarter: 2022Q2

REPORT INFORMATION
  Report Type: Spontaneous
  Country: US (occurrence: None)
  Receive Date: 20220413
  Receipt Date: 20220413
  Transmission Date: 20220721
  Serious: No
  Sender: FDA-Public Use
  Company Number: None

PATIENT
  Sex: Female

DRUGS (1)
  1. LENALIDOMIDE [Suspect]
     Active Substance: LENALIDOMIDE
     Indication: Plasma cell myeloma
     Dosage: 10MG DAILY PO
     Route: 048
     Dates: start: 20220322

REACTIONS (4)
  - Fatigue [None]
  - Constipation [None]
  - Neuropathy peripheral [None]
  - Arthralgia [None]
